FAERS Safety Report 5260929-1 (Version None)
Quarter: 2007Q1

REPORT INFORMATION
  Report Type: 
  Country: None (occurrence: None)
  Receive Date: 20070309
  Receipt Date: 20070301
  Transmission Date: 20070707
  Serious: Yes (Hospitalization)
  Sender: FDA-Public Use
  Company Number: US-KINGPHARMUSA00001-K200700242

PATIENT

DRUGS (1)
  1. LORABID [Suspect]
     Indication: SINUSITIS
     Dosage: UNK, QD
     Route: 048
     Dates: start: 20070201, end: 20070211

REACTIONS (3)
  - ARTHRALGIA [None]
  - OEDEMA PERIPHERAL [None]
  - RASH [None]
